FAERS Safety Report 23067154 (Version 1)
Quarter: 2023Q4

REPORT INFORMATION
  Report Type: Spontaneous
  Country: DE (occurrence: DE)
  Receive Date: 20231016
  Receipt Date: 20231016
  Transmission Date: 20240109
  Serious: Yes (Other)
  Sender: FDA-Public Use
  Company Number: DE-Merck Healthcare KGaA-2023477913

PATIENT

DRUGS (2)
  1. PREDNISOLONE [Suspect]
     Active Substance: PREDNISOLONE
     Indication: Product used for unknown indication
     Route: 065
     Dates: start: 20230718, end: 20230720
  2. PREDNISOLONE [Suspect]
     Active Substance: PREDNISOLONE
     Route: 065
     Dates: start: 20230826, end: 20230830

REACTIONS (5)
  - Limb discomfort [Unknown]
  - Diplopia [Unknown]
  - Condition aggravated [Unknown]
  - Optic neuritis [Unknown]
  - Myalgia [Recovered/Resolved]
